FAERS Safety Report 15793325 (Version 1)
Quarter: 2019Q1

REPORT INFORMATION
  Report Type: Spontaneous
  Country: US (occurrence: US)
  Receive Date: 20190103
  Receipt Date: 20190103
  Transmission Date: 20190417
  Serious: No
  Sender: FDA-Public Use
  Company Number: None

PATIENT

DRUGS (2)
  1. CALCIUM CARBONATE W/VITAMIN D NOS [Suspect]
     Active Substance: CALCIUM CARBONATE\VITAMIN D
     Dosage: ?          OTHER STRENGTH:500/200 MG/IU;?
  2. CALCIUM CARBONATE W/VITAMIN D NOS [Suspect]
     Active Substance: CALCIUM CARBONATE\VITAMIN D
     Dosage: ?          OTHER STRENGTH:500/200 MG/IU;?

REACTIONS (3)
  - Product dispensing error [None]
  - Incorrect dose administered [None]
  - Transcription medication error [None]
